FAERS Safety Report 4848531-4 (Version None)
Quarter: 2005Q4

REPORT INFORMATION
  Report Type: 
  Country: None (occurrence: None)
  Receive Date: 20051206
  Receipt Date: 20051121
  Transmission Date: 20060501
  Serious: Yes (Other)
  Sender: FDA-Public Use
  Company Number: USA-2005-0021362

PATIENT
  Sex: Female

DRUGS (2)
  1. OXYCONTIN [Suspect]
     Indication: PAIN
     Dosage: 40 MG; 80 MG TID
     Dates: end: 20050901
  2. OXYCONTIN [Suspect]
     Indication: PAIN
     Dosage: 40 MG; 80 MG TID
     Dates: start: 20050901

REACTIONS (5)
  - DRUG INEFFECTIVE [None]
  - INADEQUATE ANALGESIA [None]
  - KNEE OPERATION [None]
  - MEDICATION RESIDUE [None]
  - PAIN [None]
